FAERS Safety Report 6800059 (Version 25)
Quarter: 2012Q4

REPORT INFORMATION
  Report Type: 
  Country: CA (occurrence: CA)
  Receive Date: 20081030
  Receipt Date: 20121101
  Transmission Date: 20130627
  Serious: Yes (Hospitalization, Other)
  Sender: FDA-Public Use
  Company Number: PHHY2008CA25639

PATIENT
  Age: 76 Year
  Sex: Female

DRUGS (10)
  1. SANDOSTATIN LAR [Suspect]
     Indication: GASTRIC MUCOSAL HYPERTROPHY
     Dosage: 10 mg every 4 weeks
     Route: 030
     Dates: start: 20080729
  2. SANDOSTATIN LAR [Suspect]
     Dosage: 30 mg, QMO
     Route: 030
  3. SANDOSTATIN LAR [Suspect]
     Dosage: 10 mg, UNK
     Route: 030
  4. SANDOSTATIN LAR [Suspect]
     Dosage: 10 mg, QMO
     Route: 030
  5. SANDOSTATIN LAR [Suspect]
     Dosage: 10 mg every 4 weeks
     Route: 030
     Dates: end: 20110304
  6. ACTONEL [Concomitant]
     Indication: OSTEOPOROSIS
     Dosage: 35 mg, QW
  7. NORVASC [Concomitant]
     Dosage: 7.5 mg, UNK
     Dates: start: 20090506
  8. NORVASC [Concomitant]
     Dosage: 1.5 DF daily
  9. VITAMIN D [Concomitant]
  10. METOPROLOL [Concomitant]

REACTIONS (28)
  - Cardiac disorder [Unknown]
  - Pneumothorax [Unknown]
  - Aortic aneurysm [Not Recovered/Not Resolved]
  - Osteoporosis [Unknown]
  - Bone density abnormal [Unknown]
  - Swelling [Unknown]
  - Mobility decreased [Unknown]
  - Gastrointestinal disorder [Unknown]
  - Ovarian cyst [Unknown]
  - Ovarian enlargement [Unknown]
  - Meniere^s disease [Unknown]
  - Dizziness [Not Recovered/Not Resolved]
  - Anaemia [Unknown]
  - Vomiting [Not Recovered/Not Resolved]
  - Heart rate irregular [Not Recovered/Not Resolved]
  - Myocardial ischaemia [Unknown]
  - Myocardial infarction [Unknown]
  - Blood pressure systolic increased [Unknown]
  - Cough [Not Recovered/Not Resolved]
  - Increased upper airway secretion [Not Recovered/Not Resolved]
  - Weight increased [Unknown]
  - Hypertension [Unknown]
  - Bone disorder [Unknown]
  - Asthenia [Unknown]
  - Diarrhoea [Recovered/Resolved]
  - Dyspepsia [Unknown]
  - Heart rate increased [Unknown]
  - Flatulence [Unknown]
